FAERS Safety Report 17339912 (Version 8)
Quarter: 2022Q4

REPORT INFORMATION
  Report Type: Spontaneous
  Country: US (occurrence: US)
  Receive Date: 20200129
  Receipt Date: 20221202
  Transmission Date: 20230113
  Serious: Yes (Death, Hospitalization)
  Sender: FDA-Public Use
  Company Number: US-AMNEAL PHARMACEUTICALS-2020-AMRX-00178

PATIENT
  Sex: Male
  Weight: 104.3 kg

DRUGS (5)
  1. RYTARY [Suspect]
     Active Substance: CARBIDOPA\LEVODOPA
     Indication: Parkinson^s disease
     Dosage: 48.75/195MG, 2 CAPSULES, QID
     Route: 048
     Dates: end: 202001
  2. RYTARY [Suspect]
     Active Substance: CARBIDOPA\LEVODOPA
     Dosage: UNK, 3 /DAY
     Route: 048
     Dates: end: 202101
  3. RYTARY [Suspect]
     Active Substance: CARBIDOPA\LEVODOPA
     Dosage: 48.75/195MG, 2 CAPSULES, 4 /DAY
     Route: 048
     Dates: start: 2021
  4. RYTARY [Suspect]
     Active Substance: CARBIDOPA\LEVODOPA
     Dosage: 48.75-195MG 2 CAPS AT 7AM, 1 CAP AT 11:30AM, 1 CAP AT 1PM AND 1 CAP AT 7PM
     Route: 048
  5. RYTARY [Suspect]
     Active Substance: CARBIDOPA\LEVODOPA
     Dosage: 36.25-145MG 1 CAP AT 11:30AM, 1 CAP AT 1PM AND 1 CAP AT 7PM.
     Route: 048

REACTIONS (5)
  - Adverse event [Fatal]
  - Infection [Recovered/Resolved]
  - Pneumonia [Unknown]
  - Sepsis [Unknown]
  - Weight increased [Unknown]
